FAERS Safety Report 15562319 (Version 2)
Quarter: 2018Q4

REPORT INFORMATION
  Report Type: Report from Study
  Country: BR (occurrence: BR)
  Receive Date: 20181029
  Receipt Date: 20181126
  Transmission Date: 20190205
  Serious: Yes (Hospitalization)
  Sender: FDA-Public Use
  Company Number: BR-NOVOPROD-628537

PATIENT
  Sex: Female
  Weight: 38 kg

DRUGS (1)
  1. NOVOSEVEN [Suspect]
     Active Substance: COAGULATION FACTOR VIIA RECOMBINANT HUMAN
     Indication: COAGULATION FACTOR DEFICIENCY
     Dosage: 3 MG (ONLY IN  INTERCURRENCES)
     Route: 065
     Dates: start: 20110815

REACTIONS (2)
  - Abdominal pain [Not Recovered/Not Resolved]
  - Syncope [Unknown]

NARRATIVE: CASE EVENT DATE: 201801
